FAERS Safety Report 10111266 (Version 1)
Quarter: 2014Q2

REPORT INFORMATION
  Report Type: Spontaneous
  Country: JP (occurrence: JP)
  Receive Date: 20140425
  Receipt Date: 20140425
  Transmission Date: 20141212
  Serious: Yes (Death)
  Sender: FDA-Public Use
  Company Number: JP-UCBSA-118415

PATIENT
  Sex: 0

DRUGS (1)
  1. E KEPPRA [Suspect]
     Dosage: DOSE UNKNOWN
     Route: 048

REACTIONS (1)
  - Accident [Fatal]
